FAERS Safety Report 16077558 (Version 4)
Quarter: 2019Q2

REPORT INFORMATION
  Report Type: Spontaneous
  Country: FR (occurrence: FR)
  Receive Date: 20190315
  Receipt Date: 20190401
  Transmission Date: 20190711
  Serious: Yes (Hospitalization, Other)
  Sender: FDA-Public Use
  Company Number: FR-PFIZER INC-2019112955

PATIENT
  Age: 45 Year
  Sex: Female
  Weight: 119 kg

DRUGS (20)
  1. VANCOMYCINE [VANCOMYCIN HYDROCHLORIDE] [Suspect]
     Active Substance: VANCOMYCIN HYDROCHLORIDE
     Indication: OSTEITIS
     Dosage: UNK
     Route: 042
     Dates: start: 20181126, end: 20181228
  2. FOSFOCINE [Concomitant]
     Active Substance: FOSFOMYCIN
     Dosage: 4 G, 4X/DAY
     Route: 042
     Dates: start: 20190108, end: 20190108
  3. PANTOPRAZOLE [Suspect]
     Active Substance: PANTOPRAZOLE
     Indication: STRESS ULCER
     Dosage: 20 MG, 1X/DAY
     Route: 048
     Dates: start: 20181121, end: 20190101
  4. PANTOPRAZOLE [Suspect]
     Active Substance: PANTOPRAZOLE
     Dosage: 20 MG, 1X/DAY
     Route: 048
     Dates: start: 20181020, end: 20181113
  5. MEROPENEM. [Concomitant]
     Active Substance: MEROPENEM
     Dosage: 2 G, 3X/DAY
     Route: 042
     Dates: start: 20181126, end: 20181228
  6. MEROPENEM. [Concomitant]
     Active Substance: MEROPENEM
     Indication: OSTEITIS
     Dosage: 2 G, 3X/DAY
     Route: 042
     Dates: start: 20181127, end: 20190105
  7. AZTREONAM. [Concomitant]
     Active Substance: AZTREONAM
     Dosage: 2 G, 3X/DAY
  8. LANSOPRAZOLE. [Concomitant]
     Active Substance: LANSOPRAZOLE
     Dosage: 15 MG, 1X/DAY
     Dates: start: 20190101
  9. FOSFOCINE [Concomitant]
     Active Substance: FOSFOMYCIN
     Dosage: 4 G, 2X/DAY
     Route: 042
     Dates: start: 20190102, end: 20190107
  10. FOSFOCINE [Concomitant]
     Active Substance: FOSFOMYCIN
     Dosage: 4 G, 3X/DAY
     Route: 042
     Dates: start: 20190108, end: 20190108
  11. FERROSTRANE [Concomitant]
     Active Substance: SODIUM FEREDETATE
     Dosage: 15 ML, 2X/DAY
  12. MEROPENEM. [Concomitant]
     Active Substance: MEROPENEM
     Indication: MENINGITIS
     Dosage: 2 G, 2X/DAY
     Route: 042
     Dates: start: 20181229, end: 20190105
  13. PANTOPRAZOLE [Suspect]
     Active Substance: PANTOPRAZOLE
     Dosage: 20 MG, 1X/DAY
     Route: 048
     Dates: start: 20180120, end: 20181113
  14. VANCOMYCINE [VANCOMYCIN HYDROCHLORIDE] [Suspect]
     Active Substance: VANCOMYCIN HYDROCHLORIDE
     Indication: MENINGITIS
  15. TARDYFERON [Suspect]
     Active Substance: FERROUS SULFATE
     Indication: IRON DEFICIENCY
     Dosage: 80 MG, 2X/DAY
     Route: 048
     Dates: start: 20181121, end: 20190102
  16. FOSFOCINE [Concomitant]
     Active Substance: FOSFOMYCIN
     Indication: OSTEITIS
     Dosage: 4 G, 1X/DAY
     Route: 042
     Dates: start: 20181229, end: 20190101
  17. CITALOPRAM [Concomitant]
     Active Substance: CITALOPRAM HYDROBROMIDE
     Dosage: 20 MG
  18. PANTOPRAZOLE [Suspect]
     Active Substance: PANTOPRAZOLE
     Dosage: 20 MG, 1X/DAY
     Route: 048
     Dates: start: 20181116, end: 20181230
  19. FOSFOCINE [Concomitant]
     Active Substance: FOSFOMYCIN
     Indication: MENINGITIS
     Dosage: 4 G, 4X/DAY
     Route: 042
     Dates: start: 20181229, end: 20190101
  20. FUMAFER [Concomitant]
     Active Substance: FERROUS FUMARATE
     Dosage: UNK
     Dates: start: 20190103

REACTIONS (12)
  - Pruritus [Not Recovered/Not Resolved]
  - Generalised erythema [Not Recovered/Not Resolved]
  - Rash [Recovered/Resolved]
  - Blood urea increased [Unknown]
  - Skin exfoliation [Not Recovered/Not Resolved]
  - Blood albumin decreased [Unknown]
  - Rash generalised [Not Recovered/Not Resolved]
  - Blood creatinine increased [Unknown]
  - Immunoglobulins decreased [Unknown]
  - Red man syndrome [Not Recovered/Not Resolved]
  - Oedema peripheral [Not Recovered/Not Resolved]
  - Agranulocytosis [Recovering/Resolving]

NARRATIVE: CASE EVENT DATE: 20181122
